FAERS Safety Report 8501782-X (Version None)
Quarter: 2012Q3

REPORT INFORMATION
  Report Type: 
  Country: None (occurrence: None)
  Receive Date: 20120705
  Receipt Date: 20120705
  Transmission Date: 20120928
  Serious: Yes (Hospitalization)
  Sender: FDA-Public Use
  Company Number: None

PATIENT
  Sex: Male
  Weight: 166.4 kg

DRUGS (1)
  1. LENALIDOMIDE [Suspect]
     Indication: MULTIPLE MYELOMA
     Dates: start: 20120424, end: 20120601

REACTIONS (4)
  - ALVEOLITIS ALLERGIC [None]
  - DYSPNOEA [None]
  - HYPOXIA [None]
  - PYREXIA [None]
